FAERS Safety Report 10615106 (Version 24)
Quarter: 2016Q3

REPORT INFORMATION
  Report Type: Report from Study
  Country: CA (occurrence: CA)
  Receive Date: 20141201
  Receipt Date: 20160727
  Transmission Date: 20161109
  Serious: Yes (Other)
  Sender: FDA-Public Use
  Company Number: CA-ROCHE-1498147

PATIENT
  Age: 52 Year
  Sex: Female
  Weight: 83 kg

DRUGS (25)
  1. OMALIZUMAB [Suspect]
     Active Substance: OMALIZUMAB
     Route: 058
     Dates: start: 20150917
  2. OMALIZUMAB [Suspect]
     Active Substance: OMALIZUMAB
     Route: 058
     Dates: start: 20160316
  3. OMALIZUMAB [Suspect]
     Active Substance: OMALIZUMAB
     Route: 058
     Dates: start: 20160429
  4. PREGABALIN. [Suspect]
     Active Substance: PREGABALIN
     Indication: HERPES ZOSTER
     Route: 065
  5. OMALIZUMAB [Suspect]
     Active Substance: OMALIZUMAB
     Route: 058
  6. QVAR [Concomitant]
     Active Substance: BECLOMETHASONE DIPROPIONATE
  7. PREDNISONE. [Concomitant]
     Active Substance: PREDNISONE
     Route: 065
  8. OMALIZUMAB [Suspect]
     Active Substance: OMALIZUMAB
     Route: 058
     Dates: start: 201309
  9. OMALIZUMAB [Suspect]
     Active Substance: OMALIZUMAB
     Route: 058
     Dates: start: 20141112
  10. OMALIZUMAB [Suspect]
     Active Substance: OMALIZUMAB
     Route: 058
     Dates: start: 20160413
  11. SYMBICORT [Concomitant]
     Active Substance: BUDESONIDE\FORMOTEROL FUMARATE DIHYDRATE
  12. OMALIZUMAB [Suspect]
     Active Substance: OMALIZUMAB
     Indication: ASTHMA
     Route: 058
     Dates: start: 20130708
  13. OMALIZUMAB [Suspect]
     Active Substance: OMALIZUMAB
     Route: 058
     Dates: start: 20140206
  14. OMALIZUMAB [Suspect]
     Active Substance: OMALIZUMAB
     Route: 058
     Dates: start: 20140305
  15. OMALIZUMAB [Suspect]
     Active Substance: OMALIZUMAB
     Route: 058
     Dates: start: 20160511
  16. SINGULAIR [Concomitant]
     Active Substance: MONTELUKAST SODIUM
  17. OMALIZUMAB [Suspect]
     Active Substance: OMALIZUMAB
     Route: 058
     Dates: start: 20131020
  18. TRAMADOL. [Suspect]
     Active Substance: TRAMADOL
     Indication: PRODUCT USED FOR UNKNOWN INDICATION
     Dosage: TWICE EVERY 4 HOURS
     Route: 065
  19. CORTISONE [Suspect]
     Active Substance: CORTISONE\HYDROCORTISONE
     Indication: HEADACHE
     Route: 065
     Dates: start: 20130819
  20. OMALIZUMAB [Suspect]
     Active Substance: OMALIZUMAB
     Route: 058
     Dates: start: 20131227
  21. OMALIZUMAB [Suspect]
     Active Substance: OMALIZUMAB
     Route: 058
     Dates: start: 20140416
  22. OMALIZUMAB [Suspect]
     Active Substance: OMALIZUMAB
     Route: 058
     Dates: start: 20151111
  23. OMALIZUMAB [Suspect]
     Active Substance: OMALIZUMAB
     Route: 058
     Dates: start: 20160205
  24. OMALIZUMAB [Suspect]
     Active Substance: OMALIZUMAB
     Route: 058
     Dates: start: 20160706
  25. OMALIZUMAB [Suspect]
     Active Substance: OMALIZUMAB
     Route: 058
     Dates: start: 20160720

REACTIONS (40)
  - Blood pressure decreased [Unknown]
  - Weight increased [Not Recovered/Not Resolved]
  - Malaise [Unknown]
  - Acne [Unknown]
  - Red blood cell count increased [Unknown]
  - Blood urine present [Unknown]
  - Herpes zoster oticus [Unknown]
  - Adverse drug reaction [Not Recovered/Not Resolved]
  - Eye infection [Unknown]
  - Cholelithiasis [Not Recovered/Not Resolved]
  - Nasopharyngitis [Unknown]
  - Lacrimation increased [Unknown]
  - Periarthritis [Unknown]
  - Oropharyngeal pain [Recovered/Resolved]
  - Headache [Recovered/Resolved]
  - Productive cough [Recovering/Resolving]
  - Sputum discoloured [Recovering/Resolving]
  - Chalazion [Recovered/Resolved]
  - Herpes zoster [Unknown]
  - Ophthalmic herpes zoster [Recovering/Resolving]
  - Migraine [Recovered/Resolved]
  - Blood pressure increased [Unknown]
  - Sense of oppression [Unknown]
  - Pain in extremity [Unknown]
  - Post procedural complication [Unknown]
  - White blood cell count increased [Unknown]
  - Oedema [Unknown]
  - Asthenia [Unknown]
  - Somnolence [Unknown]
  - Post herpetic neuralgia [Unknown]
  - Otorrhoea [Unknown]
  - Flank pain [Unknown]
  - Nausea [Unknown]
  - Gait disturbance [Unknown]
  - Varicose vein [Unknown]
  - Urinary tract infection [Unknown]
  - Fatigue [Recovered/Resolved]
  - Pyrexia [Unknown]
  - Chills [Recovered/Resolved]
  - Dizziness [Unknown]

NARRATIVE: CASE EVENT DATE: 20130708
